FAERS Safety Report 6551444-3 (Version None)
Quarter: 2010Q1

REPORT INFORMATION
  Report Type: 
  Country: None (occurrence: None)
  Receive Date: 20100126
  Receipt Date: 20100118
  Transmission Date: 20100710
  Serious: Yes (Life-Threatening, Hospitalization, Disabling)
  Sender: FDA-Public Use
  Company Number: DK-BRACCO-000028

PATIENT
  Sex: Male
  Weight: 53 kg

DRUGS (8)
  1. CONTRAST MEDIA [Suspect]
     Indication: DIAGNOSTIC PROCEDURE
     Route: 042
     Dates: start: 20010601, end: 20010601
  2. ACTRAPID [Concomitant]
     Route: 065
  3. CALCIUM CARBONATE [Concomitant]
     Route: 065
  4. IRON [Concomitant]
     Route: 065
  5. FURIX [Concomitant]
     Route: 065
  6. SALURES-K [Concomitant]
     Route: 048
  7. VOLTAREN [Concomitant]
     Route: 065
  8. MIXTARD HUMAN 70/30 [Concomitant]
     Route: 065

REACTIONS (1)
  - NEPHROGENIC SYSTEMIC FIBROSIS [None]
